FAERS Safety Report 4693817-X (Version None)
Quarter: 2005Q2

REPORT INFORMATION
  Report Type: 
  Country: None (occurrence: None)
  Receive Date: 20050616
  Receipt Date: 20050608
  Transmission Date: 20051028
  Serious: Yes (Hospitalization)
  Sender: FDA-Public Use
  Company Number: A-CH2004-07294

PATIENT
  Age: 39 Year
  Sex: Female
  Weight: 58 kg

DRUGS (13)
  1. BOSENTAN (BOSENTAN TABLET 62.5 MG) TABLET [Suspect]
     Indication: PULMONARY HYPERTENSION
     Dosage: SEE IMAGE
     Route: 048
     Dates: start: 20021114, end: 20021120
  2. BOSENTAN (BOSENTAN TABLET 62.5 MG) TABLET [Suspect]
     Indication: PULMONARY HYPERTENSION
     Dosage: SEE IMAGE
     Route: 048
     Dates: start: 20021121, end: 20021211
  3. BOSENTAN (BOSENTAN TABLET 62.5 MG) TABLET [Suspect]
     Indication: PULMONARY HYPERTENSION
     Dosage: SEE IMAGE
     Route: 048
     Dates: start: 20021212
  4. PREDNISONE [Concomitant]
  5. DIPYRIDAMOLE [Concomitant]
  6. ENALAPRIL (MALETATE (ENALAPRIL MALEATE) [Concomitant]
  7. FAMOTIDINE [Concomitant]
  8. JUVELA NICOTINATE (TOCOPHERYL NICOTINATE) [Concomitant]
  9. NIFEDIPINE [Concomitant]
  10. MAG-LAX (PARAFFIN, LIQUID, MAGNESIUM HYDROXIDE) [Concomitant]
  11. PROVIDONE-IODINE (PROVIDONE-IONE) [Concomitant]
  12. SODIUM PICOSULFATE (SODIUM PICOSULFATE) [Concomitant]
  13. ROCALTROL [Concomitant]

REACTIONS (13)
  - ALANINE AMINOTRANSFERASE INCREASED [None]
  - ASPARTATE AMINOTRANSFERASE INCREASED [None]
  - BLOOD CREATINE PHOSPHOKINASE INCREASED [None]
  - BLOOD LACTATE DEHYDROGENASE INCREASED [None]
  - BODY TEMPERATURE DECREASED [None]
  - CHEST PAIN [None]
  - DERMATITIS [None]
  - DISEASE PROGRESSION [None]
  - MALAISE [None]
  - PERICARDITIS [None]
  - PLATELET COUNT DECREASED [None]
  - PYREXIA [None]
  - SJOGREN'S SYNDROME [None]
